FAERS Safety Report 6746816-8 (Version None)
Quarter: 2010Q2

REPORT INFORMATION
  Report Type: 
  Country: None (occurrence: None)
  Receive Date: 20100528
  Receipt Date: 20100210
  Transmission Date: 20101027
  Serious: No
  Sender: FDA-Public Use
  Company Number: A0838015A

PATIENT
  Sex: Female

DRUGS (3)
  1. VENTOLIN HFA [Suspect]
     Indication: ASTHMA
     Dosage: 27PUFF PER DAY
     Route: 055
  2. PROAIR HFA [Suspect]
     Indication: ASTHMA
     Route: 055
  3. NEBULIZER [Concomitant]

REACTIONS (4)
  - DRUG INEFFECTIVE [None]
  - INHALATION THERAPY [None]
  - OVERDOSE [None]
  - PRODUCT QUALITY ISSUE [None]
